FAERS Safety Report 23773756 (Version 5)
Quarter: 2024Q2

REPORT INFORMATION
  Report Type: Spontaneous
  Country: US (occurrence: US)
  Receive Date: 20240423
  Receipt Date: 20240614
  Transmission Date: 20240716
  Serious: No
  Sender: FDA-Public Use
  Company Number: US-PFIZER INC-202400082356

PATIENT
  Age: 14 Year
  Sex: Female

DRUGS (2)
  1. GENOTROPIN [Suspect]
     Active Substance: SOMATROPIN
     Indication: Turner^s syndrome
     Dosage: 1.7MG (NIGHTLY BY INJECTION BETWEEN THIGHS, BUTT, OR STOMACH; ONE OF THREE LOCATIONS)
  2. GENOTROPIN [Suspect]
     Active Substance: SOMATROPIN
     Dosage: 1.2 MG 6 DAYS PER WEEK
     Dates: end: 20240331

REACTIONS (5)
  - Incorrect dose administered [Unknown]
  - Drug dose omission by device [Unknown]
  - Expired device used [Unknown]
  - Device operational issue [Unknown]
  - Device mechanical issue [Unknown]

NARRATIVE: CASE EVENT DATE: 20240401
